FAERS Safety Report 25900664 (Version 2)
Quarter: 2025Q4

REPORT INFORMATION
  Report Type: Report from Study
  Country: US (occurrence: US)
  Receive Date: 20251009
  Receipt Date: 20251023
  Transmission Date: 20260117
  Serious: Yes (Hospitalization)
  Sender: EISAI
  Company Number: US-Eisai-EC-2025-197759

PATIENT
  Age: 71 Year
  Sex: Male
  Weight: 100 kg

DRUGS (2)
  1. LEQEMBI [Suspect]
     Active Substance: LECANEMAB-IRMB
     Indication: Dementia Alzheimer^s type
     Route: 042
     Dates: start: 20250611, end: 2025
  2. LEQEMBI [Suspect]
     Active Substance: LECANEMAB-IRMB
     Route: 042
     Dates: start: 20250917, end: 20250917

REACTIONS (2)
  - Amyloid related imaging abnormality-oedema/effusion [Recovering/Resolving]
  - Amyloid related imaging abnormality-microhaemorrhages and haemosiderin deposits [Recovering/Resolving]

NARRATIVE: CASE EVENT DATE: 20250918
